FAERS Safety Report 20135955 (Version 2)
Quarter: 2022Q1

REPORT INFORMATION
  Report Type: Spontaneous
  Country: CA (occurrence: CA)
  Receive Date: 20211201
  Receipt Date: 20220110
  Transmission Date: 20220423
  Serious: Yes (Death, Other)
  Sender: FDA-Public Use
  Company Number: CA-PFIZER INC-202100956707

PATIENT
  Age: 61 Year
  Sex: Female

DRUGS (5)
  1. RUXIENCE [Suspect]
     Active Substance: RITUXIMAB-PVVR
     Indication: Polymyositis
     Dosage: DAY 1 (4.25 HOURS) AND DAY 15 (2 HOURS) REPEATED EVERY 6 MONTHS
     Route: 042
     Dates: start: 20210723, end: 20210806
  2. SYNTHROID [Concomitant]
     Active Substance: LEVOTHYROXINE SODIUM
     Dosage: 1 DF
     Route: 065
  3. GABAPENTIN [Concomitant]
     Active Substance: GABAPENTIN
     Dosage: 1 DF
     Route: 065
  4. CHOLECALCIFEROL [Concomitant]
     Active Substance: CHOLECALCIFEROL
     Dosage: 1 DF
     Route: 065
  5. PANTOPRAZOLE [Concomitant]
     Active Substance: PANTOPRAZOLE
     Dosage: 1 DF
     Route: 065

REACTIONS (9)
  - Death [Fatal]
  - Malaise [Recovered/Resolved]
  - Nausea [Not Recovered/Not Resolved]
  - Headache [Recovered/Resolved]
  - Dizziness [Not Recovered/Not Resolved]
  - Influenza like illness [Recovered/Resolved]
  - Hypotension [Unknown]
  - Palpitations [Unknown]
  - Off label use [Unknown]

NARRATIVE: CASE EVENT DATE: 20210723
